FAERS Safety Report 9380121 (Version 1)
Quarter: 2013Q3

REPORT INFORMATION
  Report Type: Spontaneous
  Country: ES (occurrence: ES)
  Receive Date: 20130702
  Receipt Date: 20130702
  Transmission Date: 20140515
  Serious: Yes (Hospitalization)
  Sender: FDA-Public Use
  Company Number: ES-TEVA-415658ISR

PATIENT
  Age: 7 Decade
  Sex: Male

DRUGS (2)
  1. AMOXICILLIN W/CLAVULANIC ACID [Suspect]
     Route: 065
  2. METFORMIN [Concomitant]
     Indication: DIABETES MELLITUS
     Route: 065

REACTIONS (1)
  - Cholestasis [Recovered/Resolved]
